FAERS Safety Report 14301875 (Version 1)
Quarter: 2017Q4

REPORT INFORMATION
  Report Type: Spontaneous
  Country: BR (occurrence: BR)
  Receive Date: 20171219
  Receipt Date: 20171219
  Transmission Date: 20180321
  Serious: Yes (Other)
  Sender: FDA-Public Use
  Company Number: BR-PFIZER INC-2017534912

PATIENT
  Age: 66 Year
  Sex: Male

DRUGS (4)
  1. CALCIUM FOLINATE [Suspect]
     Active Substance: LEUCOVORIN CALCIUM
     Indication: RECTAL ADENOCARCINOMA
     Dosage: UNK (NEOADJUVANT CHEMOTHERAPY, 2 CYCLES)
     Dates: start: 200908
  2. FLUOROURACIL. [Suspect]
     Active Substance: FLUOROURACIL
     Indication: RECTAL ADENOCARCINOMA
     Dosage: UNK, CYCLIC (NEOADJUVANT CHEMOTHERAPY, 2 CYCLES)
     Dates: start: 200908
  3. OXALIPLATIN. [Concomitant]
     Active Substance: OXALIPLATIN
     Indication: RECTAL ADENOCARCINOMA
     Dosage: UNK, CYCLIC (ADJUVANT CHEMOTHERAPY, 3 CYCLES OF MODIFIED FLOX)
  4. CALCIUM FOLINATE [Suspect]
     Active Substance: LEUCOVORIN CALCIUM
     Dosage: UNK (ADJUVANT CHEMOTHERAPY, 3 CYCLES OF MODIFIED FLOX)

REACTIONS (3)
  - Dementia [Recovering/Resolving]
  - Cognitive disorder [Unknown]
  - Depressive symptom [Recovering/Resolving]
